FAERS Safety Report 4477236-7 (Version None)
Quarter: 2004Q4

REPORT INFORMATION
  Report Type: 
  Country: None (occurrence: None)
  Receive Date: 20041013
  Receipt Date: 20040927
  Transmission Date: 20050328
  Serious: No
  Sender: FDA-Public Use
  Company Number: A01200404208

PATIENT
  Age: 75 Year
  Sex: Male

DRUGS (5)
  1. ELOXATIN [Suspect]
     Indication: GASTROINTESTINAL CANCER METASTATIC
     Dosage: 150 M G Q2W
     Dates: start: 20040901, end: 20040901
  2. NAVOBAN (TROPISETRON HYDROCHLORIDE) [Concomitant]
  3. DEXAMETHASONE [Concomitant]
  4. FOLINIC ACID [Concomitant]
  5. FLUOROURACIL [Concomitant]

REACTIONS (8)
  - BRADYCARDIA [None]
  - CHEST PAIN [None]
  - COLD SWEAT [None]
  - DROOLING [None]
  - LOSS OF CONSCIOUSNESS [None]
  - RADIAL PULSE ABNORMAL [None]
  - SYNCOPE VASOVAGAL [None]
  - TRANSIENT ISCHAEMIC ATTACK [None]
